FAERS Safety Report 6841732-5 (Version None)
Quarter: 2010Q3

REPORT INFORMATION
  Report Type: 
  Country: None (occurrence: None)
  Receive Date: 20100714
  Receipt Date: 20070713
  Transmission Date: 20110219
  Serious: No
  Sender: FDA-Public Use
  Company Number: US-PFIZER INC-2007058911

PATIENT
  Sex: Male
  Weight: 133.8 kg

DRUGS (9)
  1. CHANTIX [Suspect]
     Indication: SMOKING CESSATION THERAPY
     Dates: start: 20070711, end: 20070711
  2. NAVANE [Interacting]
     Indication: BIPOLAR DISORDER
  3. LITHIUM [Concomitant]
  4. COGENTIN [Concomitant]
  5. LUVOX [Concomitant]
  6. TEGRETOL [Concomitant]
  7. BUSPAR [Concomitant]
  8. VISTARIL [Concomitant]
  9. INDERAL [Concomitant]

REACTIONS (4)
  - DRUG INTERACTION [None]
  - INSOMNIA [None]
  - TACHYPHRENIA [None]
  - TENSION [None]
